FAERS Safety Report 5047147-7 (Version None)
Quarter: 2006Q3

REPORT INFORMATION
  Report Type: 
  Country: None (occurrence: None)
  Receive Date: 20060703
  Receipt Date: 20060529
  Transmission Date: 20061208
  Serious: Yes (Hospitalization, Other)
  Sender: FDA-Public Use
  Company Number: 2006080782

PATIENT
  Age: 61 Year
  Sex: Female

DRUGS (8)
  1. ZYRTEC [Suspect]
     Indication: HYPERSENSITIVITY
     Dosage: (1 IN 1 D), ORAL
     Route: 048
     Dates: start: 20030324, end: 20030408
  2. ENALAPRIL MALEATE [Concomitant]
  3. OXYMETAZOLINE HYDROCHLORIDE (OXYMETAZOLINE) [Concomitant]
  4. POLYVIDONE (POLYVIDONE) [Concomitant]
  5. ETIDRONATE DISODIUM [Concomitant]
  6. VITAMIN D [Concomitant]
  7. FUROSEMIDE [Concomitant]
  8. ESTRADIOL [Concomitant]

REACTIONS (1)
  - PANCREATITIS ACUTE [None]
